FAERS Safety Report 16010339 (Version 1)
Quarter: 2019Q1

REPORT INFORMATION
  Report Type: Report from Study
  Country: TH (occurrence: TH)
  Receive Date: 20190225
  Receipt Date: 20190225
  Transmission Date: 20190418
  Serious: Yes (Death, Other)
  Sender: FDA-Public Use
  Company Number: PHHY2018TH070530

PATIENT
  Sex: Male
  Weight: 45 kg

DRUGS (2)
  1. GLIVEC [Suspect]
     Active Substance: IMATINIB MESYLATE
     Indication: GASTROINTESTINAL STROMAL TUMOUR
     Dosage: 400 MG, QD
     Route: 065
  2. GLIVEC [Suspect]
     Active Substance: IMATINIB MESYLATE
     Dosage: 600 MG, QD
     Route: 065

REACTIONS (6)
  - Gastrointestinal stromal tumour [Unknown]
  - Malignant neoplasm progression [Unknown]
  - Abdominal discomfort [Unknown]
  - Recurrent cancer [Unknown]
  - Abdominal pain [Unknown]
  - Death [Fatal]
